FAERS Safety Report 7772144-8 (Version None)
Quarter: 2011Q3

REPORT INFORMATION
  Report Type: 
  Country: None (occurrence: None)
  Receive Date: 20110922
  Receipt Date: 20110523
  Transmission Date: 20111222
  Serious: No
  Sender: FDA-Public Use
  Company Number: US-ASTRAZENECA-2011SE29949

PATIENT
  Sex: Male

DRUGS (3)
  1. SEROQUEL [Suspect]
     Route: 048
  2. SEROQUEL [Suspect]
     Dosage: TWO 200 MILLIGRAM AND ONE 100 MILLIGRAM FOR TOTAL OF 500 MILLIGRAM AT NIGHT
     Route: 048
  3. SEROQUEL [Suspect]
     Indication: BIPOLAR DISORDER
     Route: 048
     Dates: start: 20100101

REACTIONS (4)
  - SOMNOLENCE [None]
  - WEIGHT INCREASED [None]
  - ADVERSE EVENT [None]
  - DRY MOUTH [None]
